FAERS Safety Report 4336209-5 (Version None)
Quarter: 2004Q2

REPORT INFORMATION
  Report Type: 
  Country: None (occurrence: None)
  Receive Date: 20040406
  Receipt Date: 20040323
  Transmission Date: 20050107
  Serious: No
  Sender: FDA-Public Use
  Company Number: 2004AP00233

PATIENT
  Age: 61 Year
  Sex: Male

DRUGS (18)
  1. IRESSA [Suspect]
     Indication: ADENOCARCINOMA
     Dosage: 250 MG DAILY PO
     Route: 048
     Dates: start: 20031020, end: 20031110
  2. IRESSA [Suspect]
     Indication: LUNG NEOPLASM MALIGNANT
     Dosage: 250 MG DAILY PO
     Route: 048
     Dates: start: 20031020, end: 20031110
  3. MAGNESIUM OXIDE [Concomitant]
  4. NOVAMIN [Concomitant]
  5. TEGRETOL [Concomitant]
  6. TRYPTANOL  /AUS/ [Concomitant]
  7. SHAKUYAKUKANZOUTOU [Concomitant]
  8. MEXITIL [Concomitant]
  9. LOXONIN [Concomitant]
  10. GASTER [Concomitant]
  11. SELBEX [Concomitant]
  12. KADIAN ^KNOLL^ [Concomitant]
  13. CISPLATIN [Concomitant]
  14. VINORELBINE TARTRATE [Concomitant]
  15. MITOMYCIN-C BULK POWDER [Concomitant]
  16. CARBOPLATIN [Concomitant]
  17. DOCETAXEL [Concomitant]
  18. RADIATION THERAPY [Concomitant]

REACTIONS (4)
  - INFECTION [None]
  - LOBAR PNEUMONIA [None]
  - LUNG NEOPLASM MALIGNANT [None]
  - MALIGNANT NEOPLASM PROGRESSION [None]
